FAERS Safety Report 18532329 (Version 1)
Quarter: 2020Q4

REPORT INFORMATION
  Report Type: Spontaneous
  Country: DE (occurrence: DE)
  Receive Date: 20201123
  Receipt Date: 20201123
  Transmission Date: 20210114
  Serious: Yes (Death, Other)
  Sender: FDA-Public Use
  Company Number: DE-AUROBINDO-AUR-APL-2020-057334

PATIENT

DRUGS (15)
  1. CYTARABINE. [Suspect]
     Active Substance: CYTARABINE
     Dosage: 10 MILLIGRAM (10 MG, EVERY 2 WEEKS (CYCLE 5, DAY 5))
     Route: 065
  2. IFOSFAMIDE. [Suspect]
     Active Substance: IFOSFAMIDE
     Indication: CENTRAL NERVOUS SYSTEM LYMPHOMA
     Dosage: 800 MILLIGRAM/SQ. METER (800 MG/M2, EVERY 2 WEEKS (CYCLE 1-3, DAY 2-4))
     Route: 042
  3. IFOSFAMIDE. [Suspect]
     Active Substance: IFOSFAMIDE
     Dosage: 800 MILLIGRAM/SQ. METER (800 MG/M2, EVERY 2 WEEKS (CYCLE 5, DAY 2-4))
     Route: 042
  4. GRANULOCYTE COLONY STIMULATING FACTOR [Suspect]
     Active Substance: GRANULOCYTE COLONY-STIMULATING FACTOR NOS
     Indication: PROPHYLAXIS
     Dosage: UNK (AT EACH CYCLE)
     Route: 065
  5. ACICLOVIR [Suspect]
     Active Substance: ACYCLOVIR
     Indication: PRODUCT USED FOR UNKNOWN INDICATION
     Dosage: UNK (AT EACH CYCLE)
     Route: 065
  6. METHOTREXATE. [Suspect]
     Active Substance: METHOTREXATE
     Dosage: 2.5 MILLIGRAM (2.5 MILLIGRAM, EVERY 2 WEEKS (CYCLE 5, DAY 2-4) (WITH PREDNISOLONE))
     Route: 065
  7. PREDNISOLONE. [Suspect]
     Active Substance: PREDNISOLONE
     Indication: CENTRAL NERVOUS SYSTEM LYMPHOMA
     Dosage: 3 MILLIGRAM (3 MG ICV, EVERY 3 WEEKS (CYCLE 4 AND 6,DAY 3-5) WITH MTX)
     Route: 065
  8. CYTARABINE. [Suspect]
     Active Substance: CYTARABINE
     Indication: CENTRAL NERVOUS SYSTEM LYMPHOMA
     Dosage: 10 MILLIGRAM (10 MG, EVERY 3 WEEKS (CYCLE 4 AND 6, DAY 6))
     Route: 065
  9. RITUXIMAB. [Suspect]
     Active Substance: RITUXIMAB
     Indication: CENTRAL NERVOUS SYSTEM LYMPHOMA
     Dosage: 375 MILLIGRAM/SQ. METER (375 MG/M2, EVERY 2 WEEKS (CYCLE 1-3, DAY 0))
     Route: 042
  10. CYTARABINE. [Suspect]
     Active Substance: CYTARABINE
     Dosage: 3000 MILLIGRAM/SQ. METER (3000 MG/M2 EVERY 3 WEEKS (CYCLE 4 AND 6, DAY 1-2))
     Route: 042
  11. METHOTREXATE. [Suspect]
     Active Substance: METHOTREXATE
     Indication: CENTRAL NERVOUS SYSTEM LYMPHOMA
     Dosage: 4000 MILLIGRAM/SQ. METER (4000 MG/M2, EVERY 2 WEEKS (CYCLE 1-3, DAY 1))
     Route: 042
  12. METHOTREXATE. [Suspect]
     Active Substance: METHOTREXATE
     Dosage: 4000 MILLIGRAM/SQ. METER (4000 MG/M2, EVERY 2 WEEKS (CYCLE 5, DAY 1))
     Route: 042
  13. METHOTREXATE. [Suspect]
     Active Substance: METHOTREXATE
     Dosage: 2.5 MILLIGRAM (2.5 MILLIGRAM, EVERY 3 WEEKS (CYCLE 4 AND 6, DAY 3-5) (WITH PREDNISOLONE))
     Route: 065
  14. PREDNISOLONE. [Suspect]
     Active Substance: PREDNISOLONE
     Dosage: 3 MILLIGRAM (3 MG ICV, EVERY 2 WEEKS (CYCLE 5,DAY 2-4) WITH MTX)
     Route: 065
  15. SULFAMETHOXAZOLE;TRIMETHOPRIM [Suspect]
     Active Substance: SULFAMETHOXAZOLE\TRIMETHOPRIM
     Indication: PRODUCT USED FOR UNKNOWN INDICATION
     Dosage: UNK (AT EACH CYCLE)
     Route: 065

REACTIONS (3)
  - Hepatitis B reactivation [Fatal]
  - Hepatic failure [Fatal]
  - Contraindicated product administered [Fatal]
